FAERS Safety Report 16050203 (Version 2)
Quarter: 2019Q2

REPORT INFORMATION
  Report Type: Spontaneous
  Country: US (occurrence: US)
  Receive Date: 20190308
  Receipt Date: 20190530
  Transmission Date: 20190711
  Serious: No
  Sender: FDA-Public Use
  Company Number: US-GLAXOSMITHKLINE-US2019GSK039941

PATIENT
  Sex: Male
  Weight: 91.16 kg

DRUGS (1)
  1. LAMOTRIGINE. [Suspect]
     Active Substance: LAMOTRIGINE
     Indication: BIPOLAR DISORDER
     Dosage: UNK
     Route: 048
     Dates: start: 20170208, end: 20170222

REACTIONS (4)
  - Product substitution issue [Unknown]
  - Rash generalised [Unknown]
  - Allergic reaction to excipient [Unknown]
  - Urticaria [Unknown]
